FAERS Safety Report 20860194 (Version 1)
Quarter: 2022Q2

REPORT INFORMATION
  Report Type: Spontaneous
  Country: CH (occurrence: CH)
  Receive Date: 20220523
  Receipt Date: 20220523
  Transmission Date: 20220721
  Serious: Yes (Other)
  Sender: FDA-Public Use
  Company Number: None

PATIENT
  Age: 80 Year
  Sex: Female

DRUGS (6)
  1. ACTEMRA [Suspect]
     Active Substance: TOCILIZUMAB
     Indication: Rheumatoid arthritis
     Route: 058
     Dates: start: 202009, end: 20220308
  2. PRAZEPAM [Concomitant]
     Active Substance: PRAZEPAM
     Dates: start: 202112
  3. PROLIA [Concomitant]
     Active Substance: DENOSUMAB
     Dates: start: 202110
  4. PAROXETINE [Concomitant]
     Active Substance: PAROXETINE
     Dates: start: 202007
  5. METHOTREXATE [Concomitant]
     Active Substance: METHOTREXATE
  6. VALACYCLOVIR HYDROCHLORIDE [Concomitant]
     Active Substance: VALACYCLOVIR HYDROCHLORIDE

REACTIONS (1)
  - Cutaneous sarcoidosis [Recovering/Resolving]

NARRATIVE: CASE EVENT DATE: 20211201
